FAERS Safety Report 21481876 (Version 1)
Quarter: 2022Q4

REPORT INFORMATION
  Report Type: Other
  Country: JP (occurrence: JP)
  Receive Date: 20221020
  Receipt Date: 20221020
  Transmission Date: 20230113
  Serious: Yes (Other)
  Sender: FDA-Public Use
  Company Number: JP-DEXPHARM-20222047

PATIENT
  Age: 55 Year
  Sex: Male

DRUGS (8)
  1. AMIODARONE [Interacting]
     Active Substance: AMIODARONE
  2. DILTIAZEM [Concomitant]
     Active Substance: DILTIAZEM
  3. BISOPROLOL [Concomitant]
     Active Substance: BISOPROLOL
  4. ATORVASTATIN [Concomitant]
     Active Substance: ATORVASTATIN
  5. ETIZOLAM [Concomitant]
     Active Substance: ETIZOLAM
  6. WARFARIN [Interacting]
     Active Substance: WARFARIN
  7. DEXAMETHASONE [Interacting]
     Active Substance: DEXAMETHASONE
     Indication: COVID-19
  8. REMDESIVIR [Interacting]
     Active Substance: REMDESIVIR
     Indication: COVID-19

REACTIONS (2)
  - International normalised ratio increased [Unknown]
  - Drug interaction [Unknown]
